FAERS Safety Report 7747586-7 (Version None)
Quarter: 2011Q3

REPORT INFORMATION
  Report Type: 
  Country: None (occurrence: None)
  Receive Date: 20110909
  Receipt Date: 20110825
  Transmission Date: 20111222
  Serious: Yes (Other)
  Sender: FDA-Public Use
  Company Number: AUR-APL-2011-04833

PATIENT
  Age: 85 Year
  Sex: Female

DRUGS (3)
  1. TRIBENZOR [Concomitant]
  2. ALENDRONATE SODIUM [Suspect]
     Indication: PRODUCT USED FOR UNKNOWN INDICATION
     Dosage: (70 MG, 1 WK), ORAL
     Route: 048
  3. BYSTOLIC [Concomitant]

REACTIONS (1)
  - BLOOD PRESSURE INCREASED [None]
